FAERS Safety Report 11664160 (Version 1)
Quarter: 2015Q4

REPORT INFORMATION
  Report Type: Spontaneous
  Country: US (occurrence: None)
  Receive Date: 20151026
  Receipt Date: 20151026
  Transmission Date: 20160304
  Serious: Yes (Disabling)
  Sender: FDA-Public Use
  Company Number: None

PATIENT
  Age: 56 Year
  Sex: Female
  Weight: 72.58 kg

DRUGS (1)
  1. LEVOFLOXACIN. [Suspect]
     Active Substance: LEVOFLOXACIN
     Indication: LOWER RESPIRATORY TRACT INFECTION
     Route: 048
     Dates: start: 20140616, end: 20140623

REACTIONS (9)
  - Pain [None]
  - Muscle spasms [None]
  - Tendon pain [None]
  - Anxiety [None]
  - Myalgia [None]
  - Suicidal ideation [None]
  - Arthralgia [None]
  - Tinnitus [None]
  - Gait disturbance [None]

NARRATIVE: CASE EVENT DATE: 20140610
